FAERS Safety Report 4557200-X (Version None)
Quarter: 2005Q1

REPORT INFORMATION
  Report Type: 
  Country: None (occurrence: None)
  Receive Date: 20050120
  Receipt Date: 20050111
  Transmission Date: 20050727
  Serious: Yes (Other)
  Sender: FDA-Public Use
  Company Number: US-BRISTOL-MYERS SQUIBB COMPANY-12824272

PATIENT
  Age: 5 Year
  Sex: Female

DRUGS (1)
  1. TRIMOX [Suspect]

REACTIONS (1)
  - THROMBOCYTOPENIA [None]
